FAERS Safety Report 5247315-5 (Version None)
Quarter: 2007Q1

REPORT INFORMATION
  Report Type: 
  Country: None (occurrence: None)
  Receive Date: 20070223
  Receipt Date: 20070223
  Transmission Date: 20070707
  Serious: No
  Sender: FDA-Public Use
  Company Number: None

PATIENT
  Age: 55 Year
  Sex: Female

DRUGS (2)
  1. CEFEPIME [Suspect]
     Dosage: 1 GM  4 DOSES  IV PIGGYBACK
     Route: 042
     Dates: start: 20070215, end: 20070215
  2. DARVOCET [Suspect]
     Dosage: 100 MG  EVERY 4 HOURS, PRN  ORAL (PO)
     Route: 048
     Dates: start: 20070215, end: 20070215

REACTIONS (3)
  - INJECTION SITE PRURITUS [None]
  - PRURITUS [None]
  - URTICARIA [None]
